FAERS Safety Report 18174195 (Version 1)
Quarter: 2020Q3

REPORT INFORMATION
  Report Type: Other
  Country: CA (occurrence: CA)
  Receive Date: 20200820
  Receipt Date: 20200820
  Transmission Date: 20201103
  Serious: Yes (Other)
  Sender: FDA-Public Use
  Company Number: CA-CELLTRION INC.-2020CA025350

PATIENT

DRUGS (13)
  1. TRASTUZUMAB (UNKNOWN) [Suspect]
     Active Substance: TRASTUZUMAB
     Dosage: 342 MG 1 EVERY 3 WEEKS
     Route: 041
  2. AMLODIPINE [Concomitant]
     Active Substance: AMLODIPINE BESYLATE
     Dosage: UNK
  3. TRASTUZUMAB (UNKNOWN) [Suspect]
     Active Substance: TRASTUZUMAB
     Indication: HER2 POSITIVE BREAST CANCER
     Dosage: 360 MG 1 EVERY 6 WEEKS
     Route: 041
  4. TRASTUZUMAB (UNKNOWN) [Suspect]
     Active Substance: TRASTUZUMAB
     Dosage: 342 MG 1 EVERY 4 WEEKS
     Route: 041
  5. FASLODEX [Concomitant]
     Active Substance: FULVESTRANT
     Dosage: UNK
  6. TRASTUZUMAB (UNKNOWN) [Suspect]
     Active Substance: TRASTUZUMAB
     Dosage: 342 MG 1 EVERY 3 WEEKS
     Route: 041
  7. XELODA [Suspect]
     Active Substance: CAPECITABINE
     Indication: BREAST CANCER
     Dosage: UNK
     Route: 048
  8. TRASTUZUMAB (UNKNOWN) [Suspect]
     Active Substance: TRASTUZUMAB
     Dosage: 396 MG 1 EVERY 3 WEEKS
     Route: 041
  9. TRASTUZUMAB (UNKNOWN) [Suspect]
     Active Substance: TRASTUZUMAB
     Dosage: 456 MG 3 EVERY 1 DAYS
     Route: 041
  10. TRASTUZUMAB (UNKNOWN) [Suspect]
     Active Substance: TRASTUZUMAB
     Dosage: UNK
     Route: 041
  11. TRASTUZUMAB (UNKNOWN) [Suspect]
     Active Substance: TRASTUZUMAB
     Dosage: 360 MG 1 EVERY 6 WEEKS
     Route: 041
  12. XGEVA [Concomitant]
     Active Substance: DENOSUMAB
     Dosage: UNK (SINGLE USE VIAL FOR SC USE ONLY PRESERVATIVE FREE)
  13. IBRANCE [Concomitant]
     Active Substance: PALBOCICLIB
     Dosage: UNK

REACTIONS (2)
  - Spinal compression fracture [Not Recovered/Not Resolved]
  - Product use issue [Unknown]
